FAERS Safety Report 4348631-1 (Version None)
Quarter: 2004Q2

REPORT INFORMATION
  Report Type: 
  Country: None (occurrence: None)
  Receive Date: 20040423
  Receipt Date: 20040413
  Transmission Date: 20050107
  Serious: Yes (Death, Life-Threatening)
  Sender: FDA-Public Use
  Company Number: 2003AP03314

PATIENT
  Age: 49 Year
  Sex: Male

DRUGS (20)
  1. IRESSA [Suspect]
     Indication: LUNG ADENOCARCINOMA
     Dosage: 250 MG DAILY PO
     Route: 048
     Dates: start: 20030826, end: 20030917
  2. IRESSA [Suspect]
     Indication: NON-SMALL CELL LUNG CANCER
     Dosage: 250 MG DAILY PO
     Route: 048
     Dates: start: 20030826, end: 20030917
  3. LENDORM [Concomitant]
  4. BROCIN [Concomitant]
  5. MS CONTIN [Concomitant]
  6. VOLTAREN [Concomitant]
  7. SELBEX [Concomitant]
  8. CEREKINON [Concomitant]
  9. ALESION [Concomitant]
  10. GASTER [Concomitant]
  11. RINDERON [Concomitant]
  12. CARBOPLATIN [Concomitant]
  13. PACLITAXEL [Concomitant]
  14. CISPLATIN [Concomitant]
  15. VINORELBINE TARTRATE [Concomitant]
  16. DOCETAXEL [Concomitant]
  17. GEMCITABINE [Concomitant]
  18. IRINOTECAN [Concomitant]
  19. NO MATCH [Concomitant]
  20. RADIOTHERAPY [Concomitant]

REACTIONS (8)
  - ACUTE MYOCARDIAL INFARCTION [None]
  - CONDITION AGGRAVATED [None]
  - HYPERCOAGULATION [None]
  - LYMPHANGIOSIS CARCINOMATOSA [None]
  - NON-SMALL CELL LUNG CANCER [None]
  - RADIATION PNEUMONITIS [None]
  - RESPIRATORY DISORDER [None]
  - THROMBOSIS [None]
